FAERS Safety Report 7594696-3 (Version None)
Quarter: 2011Q3

REPORT INFORMATION
  Report Type: 
  Country: None (occurrence: None)
  Receive Date: 20110707
  Receipt Date: 20110629
  Transmission Date: 20111222
  Serious: Yes (Other)
  Sender: FDA-Public Use
  Company Number: KR-ASTELLAS-2011JP004366

PATIENT
  Sex: Female

DRUGS (5)
  1. METHYLPREDNISOLONE [Concomitant]
     Dosage: 2 MG, UNKNOWN/D
     Route: 048
  2. FOLIC ACID [Concomitant]
     Dosage: 1 MG, UNKNOWN/D
     Route: 048
  3. METHOTREXATE [Concomitant]
     Dosage: 10 MG, UNKNOWN/D
     Route: 048
  4. ALENDRONATE SODIUM [Concomitant]
     Dosage: 5 MG, UNKNOWN/D
     Route: 048
  5. TACROLIMUS [Suspect]
     Indication: RHEUMATOID ARTHRITIS
     Dosage: 1 MG, UNKNOWN/D
     Route: 048
     Dates: start: 20100716, end: 20101005

REACTIONS (2)
  - RHEUMATOID ARTHRITIS [None]
  - DRUG INEFFECTIVE [None]
